FAERS Safety Report 4594970-9 (Version None)
Quarter: 2005Q1

REPORT INFORMATION
  Report Type: 
  Country: None (occurrence: None)
  Receive Date: 20050223
  Receipt Date: 20050210
  Transmission Date: 20050727
  Serious: Yes (Other)
  Sender: FDA-Public Use
  Company Number: 2005028828

PATIENT
  Age: 61 Year
  Sex: Male
  Weight: 85 kg

DRUGS (2)
  1. DOXAZOSIN MESYLATE [Suspect]
     Indication: HYPERTENSION
     Dosage: 1 MG, ORAL
     Route: 048
     Dates: start: 20041221, end: 20041227
  2. LISINOPRIL [Concomitant]

REACTIONS (2)
  - DIFFICULTY IN WALKING [None]
  - MUSCLE SPASMS [None]
